FAERS Safety Report 16465590 (Version 1)
Quarter: 2019Q2

REPORT INFORMATION
  Report Type: Spontaneous
  Country: GB (occurrence: GB)
  Receive Date: 20190621
  Receipt Date: 20190621
  Transmission Date: 20190711
  Serious: Yes (Life-Threatening)
  Sender: FDA-Public Use
  Company Number: GB-MYLANLABS-2019M1057766

PATIENT
  Age: 47 Year
  Sex: Female
  Weight: 74 kg

DRUGS (3)
  1. SUMATRIPTAN. [Concomitant]
     Active Substance: SUMATRIPTAN
     Dosage: UNK
  2. SERTRALINE [Suspect]
     Active Substance: SERTRALINE HYDROCHLORIDE
     Indication: ANXIETY
     Dosage: 50 MILLIGRAM, QD
     Route: 048
     Dates: start: 20181127, end: 20181130
  3. SOLIFENACIN [Concomitant]
     Active Substance: SOLIFENACIN
     Dosage: UNK

REACTIONS (6)
  - Wheezing [Recovering/Resolving]
  - Rash [Recovering/Resolving]
  - Pharyngeal swelling [Recovering/Resolving]
  - Throat tightness [Recovering/Resolving]
  - Malaise [Recovering/Resolving]
  - Hypersensitivity [Recovered/Resolved with Sequelae]

NARRATIVE: CASE EVENT DATE: 20181127
